FAERS Safety Report 6202989-7 (Version None)
Quarter: 2009Q2

REPORT INFORMATION
  Report Type: 
  Country: None (occurrence: None)
  Receive Date: 20090520
  Receipt Date: 20090512
  Transmission Date: 20091009
  Serious: Yes (Other)
  Sender: FDA-Public Use
  Company Number: 2009SP010106

PATIENT
  Age: 56 Year
  Sex: Female

DRUGS (5)
  1. RIBAVIRIN [Suspect]
     Indication: HEPATITIS C
     Dosage: 400 MG;QD
  2. PEGASYS [Suspect]
     Indication: HEPATITIS C
     Dosage: 180 MCG;QW
  3. CYCLOSPORINE [Concomitant]
  4. MYOCPHENOLATE MOFETIL [Concomitant]
  5. TACROLIMUS [Concomitant]

REACTIONS (12)
  - ABDOMINAL PAIN [None]
  - ALANINE AMINOTRANSFERASE INCREASED [None]
  - ANAEMIA [None]
  - ANTINUCLEAR ANTIBODY POSITIVE [None]
  - ASPARTATE AMINOTRANSFERASE INCREASED [None]
  - AUTOIMMUNE HEPATITIS [None]
  - COMPLICATIONS OF TRANSPLANTED LIVER [None]
  - HEPATIC CIRRHOSIS [None]
  - HYPERGLYCAEMIA [None]
  - LEUKOPENIA [None]
  - MYALGIA [None]
  - WEIGHT INCREASED [None]
